FAERS Safety Report 10509532 (Version 1)
Quarter: 2014Q4

REPORT INFORMATION
  Report Type: Spontaneous
  Country: PL (occurrence: PL)
  Receive Date: 20141009
  Receipt Date: 20141009
  Transmission Date: 20150528
  Serious: Yes (Life-Threatening, Hospitalization)
  Sender: FDA-Public Use
  Company Number: PHHY2014PL129742

PATIENT
  Age: 48 Year
  Sex: Female
  Weight: 84 kg

DRUGS (8)
  1. CONCOR [Concomitant]
     Active Substance: BISOPROLOL FUMARATE
  2. ZAFIRON [Concomitant]
  3. PROMONTA [Concomitant]
  4. AMOKSIKLAV [Suspect]
     Active Substance: AMOXICILLIN\CLAVULANATE POTASSIUM
     Indication: PNEUMONIA BACTERIAL
     Dosage: 1200 MG, TID
     Route: 042
     Dates: start: 20131122
  5. EUTHYROX [Concomitant]
     Active Substance: LEVOTHYROXINE SODIUM
  6. KALIPOZ-PROLONGATUM [Concomitant]
  7. FLUTIXON [Concomitant]
  8. DIUVER [Concomitant]
     Active Substance: TORSEMIDE

REACTIONS (8)
  - Chest discomfort [Recovered/Resolved]
  - Nausea [Recovered/Resolved]
  - Peripheral coldness [Recovered/Resolved]
  - Asthenia [Recovered/Resolved]
  - Malaise [Recovered/Resolved]
  - Dyspnoea [Recovered/Resolved]
  - Confusional state [Recovered/Resolved]
  - Hyperhidrosis [Recovered/Resolved]

NARRATIVE: CASE EVENT DATE: 20131122
